FAERS Safety Report 9849945 (Version 1)
Quarter: 2014Q1

REPORT INFORMATION
  Report Type: Spontaneous
  Country: US (occurrence: None)
  Receive Date: 20140124
  Receipt Date: 20140124
  Transmission Date: 20141002
  Serious: Yes (Other)
  Sender: FDA-Public Use
  Company Number: None

PATIENT
  Age: 66 Year
  Sex: Female
  Weight: 62.14 kg

DRUGS (7)
  1. ZOLEDRONIC ACID [Suspect]
     Indication: OSTEOPOROSIS
     Dosage: ONCE A YEAR
     Dates: start: 20131226
  2. GABAPENTIN [Concomitant]
  3. PREDNISONE [Concomitant]
  4. BUPROPION [Concomitant]
  5. OXYBUTYNIN [Concomitant]
  6. PRAVASTATIN [Concomitant]
  7. VIT D [Concomitant]

REACTIONS (10)
  - Chills [None]
  - Dizziness [None]
  - Tremor [None]
  - Paraesthesia oral [None]
  - Bone pain [None]
  - Arthralgia [None]
  - Headache [None]
  - Asthenia [None]
  - Gait disturbance [None]
  - Fall [None]
